FAERS Safety Report 19811715 (Version 1)
Quarter: 2021Q3

REPORT INFORMATION
  Report Type: Spontaneous
  Country: US (occurrence: US)
  Receive Date: 20210910
  Receipt Date: 20210910
  Transmission Date: 20211014
  Serious: Yes (Other)
  Sender: FDA-Public Use
  Company Number: US-ROCHE-2740969

PATIENT
  Age: 75 Year
  Sex: Female

DRUGS (1)
  1. PEGASYS [Suspect]
     Active Substance: PEGINTERFERON ALFA-2A
     Indication: MYELOFIBROSIS
     Dosage: ONGOING: YES
     Route: 065
     Dates: start: 2010

REACTIONS (5)
  - Autoimmune disorder [Unknown]
  - Intentional product use issue [Unknown]
  - Off label use [Unknown]
  - Pulmonary hypertension [Not Recovered/Not Resolved]
  - Pulmonary fibrosis [Not Recovered/Not Resolved]

NARRATIVE: CASE EVENT DATE: 202011
